FAERS Safety Report 26020217 (Version 1)
Quarter: 2025Q4

REPORT INFORMATION
  Report Type: Spontaneous
  Country: US (occurrence: US)
  Receive Date: 20251110
  Receipt Date: 20251110
  Transmission Date: 20260117
  Serious: No
  Sender: GALPHARM INTERNATIONAL
  Company Number: US-PERRIGO-25US006180

PATIENT
  Age: 84 Year

DRUGS (3)
  1. POLYETHYLENE GLYCOL 3350 [Suspect]
     Active Substance: POLYETHYLENE GLYCOL 3350
     Indication: Bowel preparation
     Dosage: 34 G, UNKNOWN
     Route: 048
  2. TRULANCE [Suspect]
     Active Substance: PLECANATIDE
     Indication: Bowel preparation
     Dosage: UNK
     Route: 065
  3. PRILOSEC [Concomitant]
     Active Substance: OMEPRAZOLE MAGNESIUM
     Indication: Gastrooesophageal reflux disease
     Dosage: UNK
     Route: 065

REACTIONS (4)
  - Abdominal distension [Unknown]
  - Flatulence [Unknown]
  - Chest discomfort [Unknown]
  - Off label use [Unknown]
